FAERS Safety Report 5440610-6 (Version None)
Quarter: 2007Q3

REPORT INFORMATION
  Report Type: 
  Country: None (occurrence: None)
  Receive Date: 20070831
  Receipt Date: 20070828
  Transmission Date: 20080115
  Serious: Yes (Hospitalization)
  Sender: FDA-Public Use
  Company Number: US-BOEHRINGER INGELHEIM PHARMACEUTICALS, INC.-2007-BP-09047BP

PATIENT
  Sex: Female

DRUGS (6)
  1. MOBIC [Suspect]
     Indication: OSTEOARTHRITIS
     Route: 048
     Dates: start: 20070501, end: 20070601
  2. PREMARIN [Concomitant]
  3. FLEXERIL [Concomitant]
  4. MICARDIS [Concomitant]
  5. RELPAX [Concomitant]
  6. CRESTOR [Concomitant]

REACTIONS (3)
  - BACK PAIN [None]
  - HAEMATOCHEZIA [None]
  - INTESTINAL PERFORATION [None]
